FAERS Safety Report 14740395 (Version 13)
Quarter: 2024Q2

REPORT INFORMATION
  Report Type: Other
  Country: CA (occurrence: None)
  Receive Date: 20180410
  Receipt Date: 20240524
  Transmission Date: 20240715
  Serious: Yes (Hospitalization)
  Sender: FDA-Public Use
  Company Number: CA-ROCHE-2014139

PATIENT
  Age: 43 Year
  Sex: Male

DRUGS (5)
  1. OCREVUS [Suspect]
     Active Substance: OCRELIZUMAB
     Indication: Primary progressive multiple sclerosis
     Dosage: LOADING DOSE 1 OF 2?300 MG AT DAY 0 AND 14, THEN 600 MG EVERY 6 MONTH
     Route: 042
     Dates: start: 20171020
  2. OCREVUS [Suspect]
     Active Substance: OCRELIZUMAB
     Dosage: LOADING DOSE 2 OF 2
     Route: 042
     Dates: start: 20171103
  3. BOTOX [Concomitant]
     Active Substance: ONABOTULINUMTOXINA
  4. EPIVAL [Concomitant]
     Active Substance: DIVALPROEX SODIUM
  5. PROZAC [Concomitant]
     Active Substance: FLUOXETINE HYDROCHLORIDE

REACTIONS (20)
  - Cystitis [Recovered/Resolved]
  - Body temperature decreased [Unknown]
  - Pyrexia [Unknown]
  - Headache [Unknown]
  - Memory impairment [Recovered/Resolved]
  - Tremor [Not Recovered/Not Resolved]
  - Arthralgia [Not Recovered/Not Resolved]
  - Fall [Unknown]
  - Back pain [Recovered/Resolved]
  - Pollakiuria [Unknown]
  - Dysarthria [Not Recovered/Not Resolved]
  - Musculoskeletal stiffness [Not Recovered/Not Resolved]
  - Muscular weakness [Not Recovered/Not Resolved]
  - Fatigue [Unknown]
  - Speech disorder [Unknown]
  - Communication disorder [Unknown]
  - Eye disorder [Unknown]
  - Nasopharyngitis [Unknown]
  - Urinary tract infection [Not Recovered/Not Resolved]
  - Poor venous access [Unknown]

NARRATIVE: CASE EVENT DATE: 20171020
